FAERS Safety Report 4640025-4 (Version None)
Quarter: 2005Q2

REPORT INFORMATION
  Report Type: 
  Country: None (occurrence: None)
  Receive Date: 20050328
  Receipt Date: 20050104
  Transmission Date: 20051028
  Serious: No
  Sender: FDA-Public Use
  Company Number: USA050187449

PATIENT
  Age: 19 Year
  Sex: Male

DRUGS (1)
  1. STRATTERA [Suspect]
     Indication: ATTENTION DEFICIT/HYPERACTIVITY DISORDER
     Dosage: 40 MG DAY
     Dates: start: 20050103

REACTIONS (4)
  - ASTHENIA [None]
  - ENERGY INCREASED [None]
  - FATIGUE [None]
  - IRRITABILITY [None]
